FAERS Safety Report 20467752 (Version 1)
Quarter: 2022Q1

REPORT INFORMATION
  Report Type: Spontaneous
  Country: US (occurrence: US)
  Receive Date: 20220214
  Receipt Date: 20220214
  Transmission Date: 20220423
  Serious: Yes (Death)
  Sender: FDA-Public Use
  Company Number: US-PROCTER+GAMBLE-PH22001237

PATIENT
  Age: 69 Year
  Sex: Male

DRUGS (8)
  1. DIPHENHYDRAMINE HYDROCHLORIDE [Suspect]
     Active Substance: DIPHENHYDRAMINE HYDROCHLORIDE
     Dosage: UNK
  2. NORDIPHENHYDRAMINE [Suspect]
     Active Substance: NORDIPHENHYDRAMINE
  3. ETOMIDATE [Suspect]
     Active Substance: ETOMIDATE
     Dosage: UNK
  4. MIDAZOLAM [Suspect]
     Active Substance: MIDAZOLAM
     Dosage: UNK
  5. MORPHINE [Suspect]
     Active Substance: MORPHINE
     Dosage: UNK
  6. SALICYLATES NOS [Suspect]
     Active Substance: UNSPECIFIED INGREDIENT
     Dosage: UNK
  7. ACETAMINOPHEN [Suspect]
     Active Substance: ACETAMINOPHEN
     Dosage: UNK
  8. 7-AMINOCLONAZEPAM [Suspect]
     Active Substance: 7-AMINOCLONAZEPAM
     Dosage: UNK

REACTIONS (1)
  - Toxicity to various agents [Fatal]
